FAERS Safety Report 8435046-X (Version None)
Quarter: 2012Q2

REPORT INFORMATION
  Report Type: 
  Country: None (occurrence: None)
  Receive Date: 20120608
  Receipt Date: 20120524
  Transmission Date: 20120825
  Serious: Yes (Life-Threatening)
  Sender: FDA-Public Use
  Company Number: TPA2012A02458

PATIENT
  Age: 42 Year
  Sex: Male

DRUGS (8)
  1. SULFAMETHOXAZOLE AND TRIMETHOPRIM [Suspect]
     Indication: FUNGAL INFECTION
     Dosage: 4 DF PER ORAL
     Route: 048
     Dates: start: 20120308, end: 20120418
  2. LIVALO [Suspect]
     Indication: HYPERTENSION
     Dosage: 2 MG PER ORAL
     Route: 048
     Dates: end: 20120418
  3. ATELEC(CILNIDIPINE) [Suspect]
     Indication: HYPERTENSION
     Dosage: 10 MG  ORAL
     Route: 048
     Dates: end: 20120418
  4. LANSOPRAZOLE [Suspect]
     Indication: PEPTIC ULCER
     Dosage: PER ORAL
     Route: 048
     Dates: start: 20120308, end: 20120418
  5. PREDNISOLONE [Suspect]
     Indication: IGA NEPHROPATHY
     Dosage: 17.5 MG PER ORAL
     Route: 048
     Dates: start: 20120308, end: 20120418
  6. CANDESARTAN CILEXETIL [Suspect]
     Indication: HYPERTENSION
     Dosage: 4 MG PER ORAL
     Route: 048
     Dates: end: 20120418
  7. FEBURIC (FEBUXOSTAT) [Suspect]
     Indication: HYPERURICAEMIA
     Dosage: 10 MG (10 MG, 1-2) 30 MG  : 10 MG (10MG, 1 IN 1 D) PER ORAL
     Route: 048
     Dates: start: 20120126, end: 20120418
  8. ONEALFA (ALFACALCIDOL) [Suspect]
     Indication: OSTEOPOROSIS PROPHYLAXIS
     Dosage: 0.5 MCG PER ORAL
     Route: 048
     Dates: start: 20120308, end: 20120418

REACTIONS (4)
  - LYMPHOCYTE STIMULATION TEST POSITIVE [None]
  - CONTINUOUS HAEMODIAFILTRATION [None]
  - AGRANULOCYTOSIS [None]
  - SEPTIC SHOCK [None]
